FAERS Safety Report 15318457 (Version 1)
Quarter: 2018Q3

REPORT INFORMATION
  Report Type: Spontaneous
  Country: US (occurrence: US)
  Receive Date: 20180817
  Receipt Date: 20180817
  Transmission Date: 20181010
  Serious: Yes (Other)
  Sender: FDA-Public Use
  Company Number: None

PATIENT
  Age: 38 Year
  Sex: Female
  Weight: 85.5 kg

DRUGS (2)
  1. BUPROPION SR [Suspect]
     Active Substance: BUPROPION HYDROCHLORIDE
     Indication: DEPRESSION
     Dates: start: 20180309, end: 20180817
  2. BUPROPION. [Concomitant]
     Active Substance: BUPROPION
     Dates: start: 20180309, end: 20180817

REACTIONS (4)
  - Seizure [None]
  - Headache [None]
  - Amnesia [None]
  - Confusional state [None]

NARRATIVE: CASE EVENT DATE: 20180814
